FAERS Safety Report 10026842 (Version 1)
Quarter: 2014Q1

REPORT INFORMATION
  Report Type: Spontaneous
  Country: JP (occurrence: None)
  Receive Date: 20140318
  Receipt Date: 20140318
  Transmission Date: 20141002
  Serious: Yes (Other)
  Sender: FDA-Public Use
  Company Number: FK201400760

PATIENT
  Age: 10 Year
  Sex: Female

DRUGS (7)
  1. DEXAMETHASONE [Suspect]
     Indication: T-CELL TYPE ACUTE LEUKAEMIA
     Route: 048
  2. CYTARABINE (CYTARABINE) [Suspect]
     Indication: T-CELL TYPE ACUTE LEUKAEMIA
     Route: 037
  3. METHOTREXATE (METHOTREXATE) [Suspect]
     Indication: T-CELL TYPE ACUTE LEUKAEMIA
  4. VINCRISTINE (VINCRISTINE) [Suspect]
     Indication: T-CELL TYPE ACUTE LEUKAEMIA
     Dosage: FOUR DOSES
     Route: 042
  5. DAUNORUBICIN [Suspect]
     Indication: T-CELL TYPE ACUTE LEUKAEMIA
  6. ASPARAGINASE [Suspect]
     Indication: T-CELL TYPE ACUTE LEUKAEMIA
     Dosage: EIGHT DOSES
     Route: 030
  7. PREDNISOLONE (PREDNISOLONE) [Suspect]
     Indication: T-CELL TYPE ACUTE LEUKAEMIA
     Dosage: ON DAY 5

REACTIONS (4)
  - Posterior reversible encephalopathy syndrome [None]
  - Blood pressure increased [None]
  - Jugular vein thrombosis [None]
  - Intracranial venous sinus thrombosis [None]
